FAERS Safety Report 5490883-9 (Version None)
Quarter: 2007Q4

REPORT INFORMATION
  Report Type: 
  Country: None (occurrence: None)
  Receive Date: 20071019
  Receipt Date: 20071015
  Transmission Date: 20080405
  Serious: Yes (Other)
  Sender: FDA-Public Use
  Company Number: DK-ASTRAZENECA-2007SE05571

PATIENT
  Sex: Male

DRUGS (1)
  1. RHINOCORT [Suspect]
     Dosage: 100 MG IN EACH NOSTRIL
     Route: 045
     Dates: start: 19990101

REACTIONS (1)
  - GLAUCOMA [None]
